FAERS Safety Report 10160102 (Version 1)
Quarter: 2014Q2

REPORT INFORMATION
  Report Type: Spontaneous
  Country: FR (occurrence: FR)
  Receive Date: 20140508
  Receipt Date: 20140508
  Transmission Date: 20141212
  Serious: Yes (Disabling)
  Sender: FDA-Public Use
  Company Number: FR-SA-2014SA053865

PATIENT
  Age: 66 Year
  Sex: Male

DRUGS (5)
  1. TARGOCID [Suspect]
     Indication: ENDOCARDITIS
     Route: 042
     Dates: start: 20140123, end: 20140304
  2. TOPALGIC [Suspect]
     Indication: PRODUCT USED FOR UNKNOWN INDICATION
     Dosage: DOSE: 200 OR 400 MG
     Route: 048
     Dates: start: 20131224
  3. BISOPROLOL HEMIFUMARATE [Suspect]
     Indication: PRODUCT USED FOR UNKNOWN INDICATION
     Route: 048
     Dates: start: 20140124
  4. LASILIX [Suspect]
     Indication: PRODUCT USED FOR UNKNOWN INDICATION
     Route: 048
     Dates: start: 20140124
  5. GENTAMICIN [Suspect]
     Indication: ENDOCARDITIS
     Route: 042
     Dates: start: 20140123, end: 20140219

REACTIONS (2)
  - Vertigo [Not Recovered/Not Resolved]
  - Renal failure [Not Recovered/Not Resolved]
